FAERS Safety Report 9220068 (Version 2)
Quarter: 2013Q2

REPORT INFORMATION
  Report Type: Report from Study
  Country: US (occurrence: US)
  Receive Date: 20130409
  Receipt Date: 20130415
  Transmission Date: 20140414
  Serious: Yes (Death, Other)
  Sender: FDA-Public Use
  Company Number: US-ROCHE-1211415

PATIENT
  Sex: 0

DRUGS (4)
  1. BEVACIZUMAB [Suspect]
     Indication: TRANSITIONAL CELL CARCINOMA
     Dosage: OVER 30 MINUTES ON DAY 1 OF EACH 21-DAY TREATMENT
     Route: 042
  2. CISPLATIN [Suspect]
     Indication: TRANSITIONAL CELL CARCINOMA
     Dosage: OVER 60 MINUTES ON DAY 1
     Route: 042
  3. GEMCITABINE [Suspect]
     Indication: TRANSITIONAL CELL CARCINOMA
     Dosage: OVER 30 MINUTES ON DAYS 1
     Route: 042
  4. GEMCITABINE [Suspect]
     Route: 042

REACTIONS (13)
  - Haemorrhage [Unknown]
  - Renal failure [Unknown]
  - Aortic dissection [Fatal]
  - Sudden cardiac death [Fatal]
  - Central nervous system haemorrhage [Fatal]
  - Anaemia [Unknown]
  - Thrombocytopenia [Unknown]
  - Neutropenia [Unknown]
  - Febrile neutropenia [Unknown]
  - Deep vein thrombosis [Unknown]
  - Pulmonary embolism [Unknown]
  - Hypertension [Unknown]
  - Proteinuria [Unknown]
